FAERS Safety Report 5660444-7 (Version None)
Quarter: 2008Q1

REPORT INFORMATION
  Report Type: 
  Country: None (occurrence: None)
  Receive Date: 20080311
  Receipt Date: 20071024
  Transmission Date: 20080703
  Serious: No
  Sender: FDA-Public Use
  Company Number: US-BAYER-200713475BCC

PATIENT
  Age: 78 Year
  Sex: Female
  Weight: 57 kg

DRUGS (10)
  1. ALEVE [Suspect]
     Indication: PAIN
     Dosage: UNIT DOSE: 220 MG
     Route: 048
     Dates: start: 20071001
  2. DURAGESIC PAIN PATCH [Concomitant]
  3. TYLENOL (CAPLET) [Concomitant]
  4. LIPITOR [Concomitant]
  5. FISH OIL [Concomitant]
  6. MAGNESIUM [Concomitant]
  7. FOLIC ACID [Concomitant]
  8. CALTRATE [Concomitant]
  9. POTASSIUM CHLORIDE [Concomitant]
  10. FOSAMAX [Concomitant]

REACTIONS (1)
  - PAIN [None]
